FAERS Safety Report 9949140 (Version 2)
Quarter: 2014Q2

REPORT INFORMATION
  Report Type: Spontaneous
  Country: CA (occurrence: CA)
  Receive Date: 20140304
  Receipt Date: 20140630
  Transmission Date: 20141212
  Serious: Yes (Other)
  Sender: FDA-Public Use
  Company Number: CA-ROCHE-1356956

PATIENT
  Age: 54 Year
  Sex: Male

DRUGS (4)
  1. XOLAIR [Suspect]
     Indication: ASTHMA
     Route: 058
     Dates: start: 20130308
  2. SYMBICORT [Concomitant]
  3. VENTOLIN [Concomitant]
  4. SINGULAIR [Concomitant]

REACTIONS (7)
  - Foot fracture [Unknown]
  - Lower limb fracture [Unknown]
  - Injury [Unknown]
  - Asthma [Unknown]
  - Dyspnoea [Unknown]
  - Nasopharyngitis [Unknown]
  - Chest discomfort [Unknown]
